FAERS Safety Report 18204562 (Version 1)
Quarter: 2020Q3

REPORT INFORMATION
  Report Type: Spontaneous
  Country: DE (occurrence: DE)
  Receive Date: 20200827
  Receipt Date: 20200827
  Transmission Date: 20201103
  Serious: Yes (Other)
  Sender: FDA-Public Use
  Company Number: DE-ASTRAZENECA-2020SF06416

PATIENT
  Age: 48 Year
  Sex: Female

DRUGS (8)
  1. LETROZOLE. [Concomitant]
     Active Substance: LETROZOLE
  2. IBRANCE [Suspect]
     Active Substance: PALBOCICLIB
     Indication: BREAST CANCER
     Route: 048
     Dates: start: 201906
  3. ABEMACICLIB [Suspect]
     Active Substance: ABEMACICLIB
     Route: 065
  4. DENOSUMAB [Suspect]
     Active Substance: DENOSUMAB
     Route: 065
  5. FASLODEX [Suspect]
     Active Substance: FULVESTRANT
     Indication: BREAST CANCER
     Route: 030
     Dates: start: 201906
  6. PACLITAXEL. [Concomitant]
     Active Substance: PACLITAXEL
  7. FASLODEX [Suspect]
     Active Substance: FULVESTRANT
     Indication: BREAST CANCER
     Dosage: 100 MG/DAY FROM SECOND CYCLE
     Route: 030
     Dates: start: 201906
  8. IBRANCE [Suspect]
     Active Substance: PALBOCICLIB
     Indication: BREAST CANCER
     Dosage: 100 MG/DAY FROM SECOND CYCLE
     Route: 048
     Dates: start: 201906

REACTIONS (3)
  - Product use complaint [Unknown]
  - Metastases to liver [Unknown]
  - Neutropenia [Unknown]

NARRATIVE: CASE EVENT DATE: 202006
